FAERS Safety Report 24975958 (Version 3)
Quarter: 2025Q1

REPORT INFORMATION
  Report Type: Report from Study
  Country: CN (occurrence: CN)
  Receive Date: 20250217
  Receipt Date: 20250320
  Transmission Date: 20250408
  Serious: Yes (Hospitalization)
  Sender: ABBVIE
  Company Number: CN-ABBVIE-6135584

PATIENT
  Age: 19 Year
  Sex: Female
  Weight: 44 kg

DRUGS (12)
  1. UPADACITINIB [Suspect]
     Active Substance: UPADACITINIB
     Indication: Crohn^s disease
     Route: 048
     Dates: start: 20241120, end: 20250212
  2. RABEPRAZOLE SODIUM [Concomitant]
     Active Substance: RABEPRAZOLE SODIUM
     Indication: Abdominal pain
     Route: 042
     Dates: start: 20250212, end: 20250212
  3. PHLOROGLUCINOL [Concomitant]
     Active Substance: PHLOROGLUCINOL
     Indication: Abdominal pain
     Route: 042
     Dates: start: 20250212, end: 20250212
  4. PHLOROGLUCINOL [Concomitant]
     Active Substance: PHLOROGLUCINOL
     Indication: Abdominal pain
     Route: 042
     Dates: start: 20250212, end: 20250212
  5. SODIUM CHLORIDE [Concomitant]
     Active Substance: SODIUM CHLORIDE
     Indication: Product used for unknown indication
     Route: 041
     Dates: start: 20250212, end: 20250215
  6. DEXTROSE [Concomitant]
     Active Substance: DEXTROSE MONOHYDRATE
     Indication: Blood glucose abnormal
     Route: 042
     Dates: start: 20250212, end: 20250215
  7. IBUPROFEN [Concomitant]
     Active Substance: IBUPROFEN
     Indication: Antiviral treatment
     Dosage: SUSPENSION
     Route: 048
     Dates: start: 20250212, end: 20250215
  8. OSELTAMIVIR PHOSPHATE [Concomitant]
     Active Substance: OSELTAMIVIR PHOSPHATE
     Indication: Antiviral treatment
     Route: 048
     Dates: start: 20250212, end: 20250215
  9. Eucalyptol,Limonene and Pinene [Concomitant]
     Indication: Antiviral treatment
     Dosage: ENTERIC
     Route: 048
     Dates: start: 20250212, end: 20250212
  10. AMINOPHYLLINE\CHLORPHENIRAMINE MALEATE\METHOXYPHENAMINE HYDROCHLORIDE\ [Concomitant]
     Active Substance: AMINOPHYLLINE\CHLORPHENIRAMINE MALEATE\METHOXYPHENAMINE HYDROCHLORIDE\NOSCAPINE
     Indication: Antiviral treatment
     Route: 048
     Dates: start: 20250212, end: 20250212
  11. METOCLOPRAMIDE [Concomitant]
     Active Substance: METOCLOPRAMIDE
     Indication: Abdominal pain
     Route: 030
     Dates: start: 20250212, end: 20250212
  12. OMEPRAZOLE SODIUM [Concomitant]
     Active Substance: OMEPRAZOLE SODIUM
     Indication: Abdominal pain
     Route: 042
     Dates: start: 20250212, end: 20250212

REACTIONS (2)
  - Abdominal infection [Not Recovered/Not Resolved]
  - Influenza A virus test positive [Not Recovered/Not Resolved]

NARRATIVE: CASE EVENT DATE: 20250212
